FAERS Safety Report 23015789 (Version 2)
Quarter: 2023Q4

REPORT INFORMATION
  Report Type: Report from Study
  Country: US (occurrence: US)
  Receive Date: 20231002
  Receipt Date: 20231016
  Transmission Date: 20240109
  Serious: Yes (Hospitalization)
  Sender: FDA-Public Use
  Company Number: US-PFIZER INC-202300307974

PATIENT
  Age: 72 Year
  Sex: Female

DRUGS (4)
  1. IRINOTECAN HYDROCHLORIDE [Suspect]
     Active Substance: IRINOTECAN HYDROCHLORIDE
     Indication: Neoplasm
     Dosage: 295.2, Q2WKS
     Route: 042
     Dates: start: 20230328
  2. FLUOROURACIL [Suspect]
     Active Substance: FLUOROURACIL
     Dosage: 3936 MG, Q2WKS
     Route: 042
     Dates: start: 20230328
  3. LEUCOVORIN [Suspect]
     Active Substance: LEUCOVORIN\LEUCOVORIN CALCIUM
     Dosage: 656 MG, Q2WKS
     Route: 042
     Dates: start: 20230328
  4. RP-6306 [Suspect]
     Active Substance: RP-6306
     Dosage: 120 MG, 2X/DAY
     Route: 048
     Dates: start: 20230328

REACTIONS (1)
  - Pneumonia aspiration [Recovered/Resolved]

NARRATIVE: CASE EVENT DATE: 20230604
